FAERS Safety Report 23742974 (Version 1)
Quarter: 2024Q2

REPORT INFORMATION
  Report Type: Report from Study
  Country: CA (occurrence: CA)
  Receive Date: 20240415
  Receipt Date: 20240415
  Transmission Date: 20240717
  Serious: Yes (Death)
  Sender: FDA-Public Use
  Company Number: CA-MYLANLABS-2023M1103479

PATIENT
  Age: 50 Year
  Sex: Male

DRUGS (3)
  1. CLOZAPINE [Suspect]
     Active Substance: CLOZAPINE
     Indication: Product used for unknown indication
     Dosage: UNK, MORE THAN 10 YEARS
     Route: 065
     Dates: start: 20061228
  2. LITHIUM [Suspect]
     Active Substance: LITHIUM
     Indication: Product used for unknown indication
     Dosage: UNK, MORE THAN 10 YEARS
     Route: 065
  3. HALDOL [Suspect]
     Active Substance: HALOPERIDOL
     Indication: Product used for unknown indication
     Dosage: UNK, MORE THAN 10 YEARS
     Route: 065

REACTIONS (2)
  - Lung neoplasm malignant [Fatal]
  - Neutrophil count abnormal [Recovered/Resolved]

NARRATIVE: CASE EVENT DATE: 20070125
